FAERS Safety Report 7518750-7 (Version None)
Quarter: 2011Q2

REPORT INFORMATION
  Report Type: 
  Country: None (occurrence: None)
  Receive Date: 20110601
  Receipt Date: 20110601
  Transmission Date: 20111010
  Serious: Yes (Other)
  Sender: FDA-Public Use
  Company Number: None

PATIENT
  Age: 38 Year
  Sex: Female
  Weight: 68.0396 kg

DRUGS (3)
  1. VENLAFAXINE [Concomitant]
  2. SUBOXONE [Suspect]
     Indication: DRUG DEPENDENCE
     Dosage: 2MG/0.5MG 2 FILMS DAILY SL
     Route: 060
     Dates: start: 20110428, end: 20110514
  3. LAMOTRIGINE [Concomitant]

REACTIONS (3)
  - AGEUSIA [None]
  - SWOLLEN TONGUE [None]
  - OEDEMA MOUTH [None]
